FAERS Safety Report 8784984 (Version 1)
Quarter: 2012Q4

REPORT INFORMATION
  Report Type: Spontaneous
  Country: US (occurrence: None)
  Receive Date: 20120907
  Receipt Date: 20120907
  Transmission Date: 20130627
  Serious: No
  Sender: FDA-Public Use
  Company Number: None

PATIENT
  Age: 50 Year
  Sex: Female
  Weight: 56.7 kg

DRUGS (1)
  1. CIPROFLOXACIN HCL [Suspect]
     Indication: UTI
     Dates: start: 20120904, end: 20120904

REACTIONS (3)
  - Paraesthesia [None]
  - Tremor [None]
  - Asthenia [None]
